FAERS Safety Report 15498439 (Version 2)
Quarter: 2018Q4

REPORT INFORMATION
  Report Type: Report from Study
  Country: PK (occurrence: PK)
  Receive Date: 20181015
  Receipt Date: 20181016
  Transmission Date: 20190205
  Serious: Yes (Death)
  Sender: FDA-Public Use
  Company Number: PHHY2018PK120324

PATIENT
  Age: 66 Year
  Sex: Female

DRUGS (2)
  1. MYFORTIC [Suspect]
     Active Substance: MYCOPHENOLATE SODIUM
     Indication: RENAL TRANSPLANT
     Dosage: 360 MG, BID
     Route: 048
     Dates: start: 20160712
  2. SANDIMMUN NEORAL [Suspect]
     Active Substance: CYCLOSPORINE
     Indication: RENAL TRANSPLANT
     Dosage: 0.5 DF (100 MG/5 ML), BID
     Route: 048
     Dates: start: 20160712

REACTIONS (2)
  - Dyspepsia [Fatal]
  - Vomiting [Fatal]

NARRATIVE: CASE EVENT DATE: 20180923
